FAERS Safety Report 9163294 (Version 4)
Quarter: 2013Q2

REPORT INFORMATION
  Report Type: Spontaneous
  Country: JP (occurrence: JP)
  Receive Date: 20130314
  Receipt Date: 20130605
  Transmission Date: 20140414
  Serious: Yes (Life-Threatening)
  Sender: FDA-Public Use
  Company Number: JP-GLAXOSMITHKLINE-B0874615A

PATIENT
  Age: 58 Year
  Sex: Female

DRUGS (1)
  1. OMEGA-3-ACID ETHYL ESTERS [Suspect]
     Indication: HYPERLIPIDAEMIA
     Dosage: 2000MG PER DAY
     Route: 048
     Dates: start: 20130121, end: 20130303

REACTIONS (5)
  - Blood triglycerides increased [Recovered/Resolved]
  - Blood lactate dehydrogenase increased [Unknown]
  - Blood potassium increased [Unknown]
  - Lactescent serum [Unknown]
  - Aspartate aminotransferase increased [Unknown]
